FAERS Safety Report 11912961 (Version 1)
Quarter: 2016Q1

REPORT INFORMATION
  Report Type: Spontaneous
  Country: BG (occurrence: BG)
  Receive Date: 20160113
  Receipt Date: 20160113
  Transmission Date: 20160526
  Serious: Yes (Other)
  Sender: FDA-Public Use
  Company Number: BG-ROCHE-1694018

PATIENT
  Age: 44 Year
  Sex: Female
  Weight: 60 kg

DRUGS (1)
  1. ZELBORAF [Suspect]
     Active Substance: VEMURAFENIB
     Indication: MALIGNANT MELANOMA
     Route: 048
     Dates: start: 20150526, end: 20160106

REACTIONS (1)
  - Iridocyclitis [Recovering/Resolving]

NARRATIVE: CASE EVENT DATE: 20151231
